FAERS Safety Report 7407395-5 (Version None)
Quarter: 2011Q2

REPORT INFORMATION
  Report Type: 
  Country: None (occurrence: None)
  Receive Date: 20110411
  Receipt Date: 20081030
  Transmission Date: 20111010
  Serious: Yes (Death, Hospitalization, Other)
  Sender: FDA-Public Use
  Company Number: DE-GENENTECH-316469

PATIENT
  Age: 84 Year
  Sex: Male

DRUGS (1)
  1. LUCENTIS [Suspect]
     Indication: MACULAR DEGENERATION
     Dosage: UNK
     Route: 031
     Dates: start: 20080204

REACTIONS (3)
  - DEATH [None]
  - INTESTINAL FISTULA [None]
  - CEREBROVASCULAR ACCIDENT [None]
